FAERS Safety Report 10125516 (Version 3)
Quarter: 2015Q2

REPORT INFORMATION
  Report Type: Spontaneous
  Country: FR (occurrence: FR)
  Receive Date: 20140427
  Receipt Date: 20150430
  Transmission Date: 20150821
  Serious: Yes (Other)
  Sender: FDA-Public Use
  Company Number: FR-009507513-1404FRA010696

PATIENT
  Age: 17 Year
  Sex: Female
  Weight: 70 kg

DRUGS (10)
  1. IFOSFAMIDE. [Suspect]
     Active Substance: IFOSFAMIDE
     Indication: OSTEOSARCOMA METASTATIC
     Dosage: 4.7 G (3G/M2), QD
     Route: 042
     Dates: start: 20130831, end: 20130901
  2. ONDANSETRON HYDROCHLORIDE. [Concomitant]
     Active Substance: ONDANSETRON HYDROCHLORIDE
     Indication: PROPHYLAXIS OF NAUSEA AND VOMITING
  3. UROMITEXAN [Suspect]
     Active Substance: MESNA
     Indication: PROPHYLAXIS
     Dosage: UNK
     Route: 042
     Dates: start: 20130831, end: 20130902
  4. ACTISKENAN [Concomitant]
     Active Substance: MORPHINE SULFATE
     Dosage: UNK UNK, ONCE
  5. EMEND [Suspect]
     Active Substance: APREPITANT
     Indication: PROPHYLAXIS OF NAUSEA AND VOMITING
     Dosage: 125 MG, QD
     Route: 048
     Dates: start: 20130831, end: 20130831
  6. PLITICAN [Suspect]
     Active Substance: ALIZAPRIDE HYDROCHLORIDE
     Dosage: UNK
     Route: 042
     Dates: start: 20130831, end: 20130902
  7. SKENAN [Concomitant]
     Active Substance: MORPHINE SULFATE
  8. EMEND [Suspect]
     Active Substance: APREPITANT
     Dosage: 80 MG, QD
     Route: 048
     Dates: start: 20130901, end: 20130904
  9. IFOSFAMIDE. [Suspect]
     Active Substance: IFOSFAMIDE
     Indication: OSTEOSARCOMA METASTATIC
     Dosage: 6.5 G (3G/M2), QD
     Route: 042
     Dates: start: 20131209, end: 20131211
  10. ETOPOPHOS [Suspect]
     Active Substance: ETOPOSIDE PHOSPHATE
     Indication: OSTEOSARCOMA METASTATIC
     Dosage: 119 MG, QD
     Route: 042
     Dates: start: 20130831, end: 20130903

REACTIONS (2)
  - Neurotoxicity [Recovered/Resolved]
  - Encephalopathy [Recovered/Resolved]

NARRATIVE: CASE EVENT DATE: 20130901
